FAERS Safety Report 10149088 (Version 1)
Quarter: 2014Q2

REPORT INFORMATION
  Report Type: Spontaneous
  Country: US (occurrence: None)
  Receive Date: 20140430
  Receipt Date: 20140430
  Transmission Date: 20141212
  Serious: Yes (Hospitalization)
  Sender: FDA-Public Use
  Company Number: None

PATIENT
  Age: 58 Year
  Sex: Female

DRUGS (11)
  1. ENOXAPARIN [Suspect]
     Indication: THROMBOSIS
     Route: 058
     Dates: start: 20130917, end: 20130917
  2. AMPICILLIN/SULBACTAM [Concomitant]
  3. CASPOFUNGIN [Suspect]
  4. DEXAMETHASONE [Concomitant]
  5. FLUCONAZOLE [Concomitant]
  6. FUROSEMIDE [Concomitant]
  7. HYDROMORPHONE [Concomitant]
  8. INSULIN [Concomitant]
  9. MAGNESIUM SULFATE [Concomitant]
  10. POTASSIUM CHLORIDE [Concomitant]
  11. PROMETHAZINE [Concomitant]

REACTIONS (4)
  - Retroperitoneal haemorrhage [None]
  - Malaise [None]
  - Depressed level of consciousness [None]
  - Oxygen saturation decreased [None]
